FAERS Safety Report 25699113 (Version 2)
Quarter: 2025Q3

REPORT INFORMATION
  Report Type: Spontaneous
  Country: EU (occurrence: EU)
  Receive Date: 20250819
  Receipt Date: 20250825
  Transmission Date: 20251020
  Serious: Yes (Other)
  Sender: ROCHE
  Company Number: None

PATIENT
  Age: 14 Year
  Sex: Female

DRUGS (5)
  1. RITUXIMAB [Suspect]
     Active Substance: RITUXIMAB
     Indication: Neuromyelitis optica spectrum disorder
     Dosage: 375 MG/M2, WEEKLY
     Route: 042
  2. METHYLPREDNISOLONE [Concomitant]
     Active Substance: METHYLPREDNISOLONE
     Indication: Neuromyelitis optica spectrum disorder
     Dosage: 30 MG/KG, 1X/DAY
  3. PREDNISONE [Concomitant]
     Active Substance: PREDNISONE
     Indication: Neuromyelitis optica spectrum disorder
     Route: 048
  4. CARBAMAZEPINE [Concomitant]
     Active Substance: CARBAMAZEPINE
     Indication: Neuromyelitis optica spectrum disorder
     Dosage: 450 MG, 1X/DAY
  5. MYCOPHENOLATE MOFETIL [Concomitant]
     Active Substance: MYCOPHENOLATE MOFETIL
     Indication: Neuromyelitis optica spectrum disorder
     Dosage: 1 G, 1X/DAY

REACTIONS (7)
  - Neutropenia [Recovered/Resolved]
  - Skin oedema [Recovered/Resolved]
  - Butterfly rash [Recovered/Resolved]
  - Pyrexia [Recovered/Resolved]
  - Off label use [Unknown]
  - Oedema [Unknown]
  - Candida infection [Unknown]
